FAERS Safety Report 18320728 (Version 1)
Quarter: 2020Q3

REPORT INFORMATION
  Report Type: Spontaneous
  Country: US (occurrence: US)
  Receive Date: 20200929
  Receipt Date: 20200929
  Transmission Date: 20201103
  Serious: No
  Sender: FDA-Public Use
  Company Number: US-DRREDDYS-USA/USA/20/0127004

PATIENT

DRUGS (4)
  1. ALLOPURINOL. [Suspect]
     Active Substance: ALLOPURINOL
     Indication: GOUT
     Route: 065
  2. ZYLOPRIM [Suspect]
     Active Substance: ALLOPURINOL
     Indication: GOUT
  3. ADENURIC [Suspect]
     Active Substance: FEBUXOSTAT
     Indication: GOUT
  4. LOPURIN [Suspect]
     Active Substance: ALLOPURINOL
     Indication: GOUT

REACTIONS (2)
  - Product quality issue [Unknown]
  - Drug ineffective [Unknown]
